FAERS Safety Report 11891592 (Version 1)
Quarter: 2016Q1

REPORT INFORMATION
  Report Type: Spontaneous
  Country: US (occurrence: None)
  Receive Date: 20160105
  Receipt Date: 20160105
  Transmission Date: 20160526
  Serious: Yes (Disabling, Other)
  Sender: FDA-Public Use
  Company Number: None

PATIENT
  Age: 46 Year
  Sex: Male
  Weight: 73.48 kg

DRUGS (1)
  1. MEFLOQUINE [Suspect]
     Active Substance: MEFLOQUINE
     Indication: MALARIA PROPHYLAXIS
     Dosage: TAKEN BY MOUTH
     Dates: start: 20070630, end: 20071231

REACTIONS (4)
  - Irritability [None]
  - Tinnitus [None]
  - Insomnia [None]
  - Disturbance in attention [None]

NARRATIVE: CASE EVENT DATE: 20070712
